FAERS Safety Report 5010988-6 (Version None)
Quarter: 2006Q2

REPORT INFORMATION
  Report Type: 
  Country: None (occurrence: None)
  Receive Date: 20060523
  Receipt Date: 20060515
  Transmission Date: 20061013
  Serious: Yes (Death, Hospitalization)
  Sender: FDA-Public Use
  Company Number: HQWYE640803FEB06

PATIENT
  Age: 23 Month
  Sex: Female

DRUGS (12)
  1. MYLOTARG [Suspect]
     Indication: ACUTE MYELOID LEUKAEMIA RECURRENT
     Dosage: SEE IMAGE
     Route: 041
     Dates: start: 20051124, end: 20051124
  2. MYLOTARG [Suspect]
     Indication: ACUTE MYELOID LEUKAEMIA RECURRENT
     Dosage: SEE IMAGE
     Route: 041
     Dates: start: 20051208, end: 20051208
  3. FUNGIZONE [Concomitant]
  4. POLYMYXIN B SULFATE             (POLYMYXIN B SULFATE) [Concomitant]
  5. ALLOID           (SODIUM ALGINATE) [Concomitant]
  6. BACTRIM [Concomitant]
  7. BIOFERMIN R      (STREPTOCOCCUS FAECALIS) [Concomitant]
  8. TIENAM        (CILASTATIN/IMIPENEM) [Concomitant]
  9. DAUNORUBICIN HYDROCHLORIDE [Concomitant]
  10. IDARUBICIN HCL [Concomitant]
  11. CYTARABINE [Concomitant]
  12. VINCRISTINE SULFATE [Concomitant]

REACTIONS (17)
  - ABDOMINAL DISTENSION [None]
  - ACUTE MYELOID LEUKAEMIA RECURRENT [None]
  - ANAEMIA [None]
  - BLOOD LACTATE DEHYDROGENASE INCREASED [None]
  - BONE PAIN [None]
  - CHILLS [None]
  - DIARRHOEA [None]
  - DISSEMINATED INTRAVASCULAR COAGULATION [None]
  - HYPOALBUMINAEMIA [None]
  - HYPOKALAEMIA [None]
  - PLATELET COUNT DECREASED [None]
  - PNEUMONIA ASPERGILLUS [None]
  - THIRST [None]
  - TUMOUR LYSIS SYNDROME [None]
  - URINE OUTPUT DECREASED [None]
  - VOMITING [None]
  - WHITE BLOOD CELL COUNT DECREASED [None]
